FAERS Safety Report 25657996 (Version 1)
Quarter: 2025Q3

REPORT INFORMATION
  Report Type: Spontaneous
  Country: ZA (occurrence: ZA)
  Receive Date: 20250808
  Receipt Date: 20250808
  Transmission Date: 20251021
  Serious: Yes (Hospitalization)
  Sender: ALEXION PHARMACEUTICALS
  Company Number: ZA-AstraZeneca-CH-00723563A

PATIENT
  Age: 76 Year
  Sex: Female

DRUGS (6)
  1. SYMBICORT [Suspect]
     Active Substance: BUDESONIDE\FORMOTEROL FUMARATE DIHYDRATE
     Indication: Asthma
  2. SYMBICORT [Suspect]
     Active Substance: BUDESONIDE\FORMOTEROL FUMARATE DIHYDRATE
     Indication: Chronic obstructive pulmonary disease
  3. SYMBICORT [Suspect]
     Active Substance: BUDESONIDE\FORMOTEROL FUMARATE DIHYDRATE
     Indication: Emphysema
  4. ROBAXIN [Concomitant]
     Active Substance: METHOCARBAMOL
  5. PREDNISONE [Concomitant]
     Active Substance: PREDNISONE
  6. ETORICOXIB [Concomitant]
     Active Substance: ETORICOXIB

REACTIONS (2)
  - Fall [Unknown]
  - Limb injury [Unknown]
